FAERS Safety Report 25080741 (Version 2)
Quarter: 2025Q2

REPORT INFORMATION
  Report Type: Report from Study
  Country: CA (occurrence: CA)
  Receive Date: 20250315
  Receipt Date: 20250426
  Transmission Date: 20250716
  Serious: Yes (Other)
  Sender: ABBVIE
  Company Number: CA-ABBVIE-6173176

PATIENT
  Age: 71 Year
  Sex: Female

DRUGS (2)
  1. RINVOQ [Suspect]
     Active Substance: UPADACITINIB
     Indication: Crohn^s disease
     Route: 048
  2. RINVOQ [Suspect]
     Active Substance: UPADACITINIB
     Indication: Crohn^s disease
     Route: 048
     Dates: start: 202504

REACTIONS (11)
  - Hip fracture [Unknown]
  - Fall [Unknown]
  - Loss of consciousness [Unknown]
  - Nasopharyngitis [Unknown]
  - Influenza [Unknown]
  - General physical health deterioration [Unknown]
  - Abdominal pain [Unknown]
  - Social problem [Unknown]
  - Impaired work ability [Unknown]
  - Aphthous ulcer [Unknown]
  - Injury [Unknown]

NARRATIVE: CASE EVENT DATE: 20250304
